FAERS Safety Report 24183253 (Version 1)
Quarter: 2024Q3

REPORT INFORMATION
  Report Type: Spontaneous
  Country: AU (occurrence: AU)
  Receive Date: 20240807
  Receipt Date: 20240807
  Transmission Date: 20241017
  Serious: Yes (Other)
  Sender: ACCORD
  Company Number: None

PATIENT
  Age: 68 Year
  Sex: Male

DRUGS (7)
  1. ROSUVASTATIN CALCIUM [Suspect]
     Active Substance: ROSUVASTATIN CALCIUM
     Indication: Product used for unknown indication
  2. UMECLIDINIUM BROMIDE\VILANTEROL TRIFENATATE [Suspect]
     Active Substance: UMECLIDINIUM BROMIDE\VILANTEROL TRIFENATATE
     Indication: Product used for unknown indication
  3. ALBUTEROL [Suspect]
     Active Substance: ALBUTEROL
     Indication: Product used for unknown indication
  4. SPIRIVA [Suspect]
     Active Substance: TIOTROPIUM BROMIDE MONOHYDRATE
     Indication: Product used for unknown indication
  5. ASPIRIN [Suspect]
     Active Substance: ASPIRIN
     Indication: Product used for unknown indication
  6. IRBESARTAN [Suspect]
     Active Substance: IRBESARTAN
     Indication: Product used for unknown indication
  7. FLUTICASONE FUROATE\UMECLIDINIUM BROMIDE\VILANTEROL TRIFENATATE [Suspect]
     Active Substance: FLUTICASONE FUROATE\UMECLIDINIUM BROMIDE\VILANTEROL TRIFENATATE
     Indication: Product used for unknown indication

REACTIONS (12)
  - Asbestosis [Unknown]
  - Lower respiratory tract infection [Unknown]
  - Angiocardiogram [Unknown]
  - Ankle fracture [Unknown]
  - Chronic obstructive pulmonary disease [Unknown]
  - Coronary artery disease [Unknown]
  - Cough [Unknown]
  - Dyspnoea [Unknown]
  - Emphysema [Unknown]
  - Malaise [Unknown]
  - Obstructive airways disorder [Unknown]
  - Wheezing [Unknown]
